FAERS Safety Report 7829120-6 (Version None)
Quarter: 2011Q4

REPORT INFORMATION
  Report Type: 
  Country: None (occurrence: None)
  Receive Date: 20111020
  Receipt Date: 20111011
  Transmission Date: 20120403
  Serious: Yes (Hospitalization)
  Sender: FDA-Public Use
  Company Number: PHHY2011AR90140

PATIENT
  Sex: Female

DRUGS (2)
  1. INSULIN [Concomitant]
  2. EXFORGE HCT [Suspect]
     Indication: HYPERTENSION
     Dosage: UNK

REACTIONS (2)
  - CARDIOVASCULAR DISORDER [None]
  - LIMB INJURY [None]
